FAERS Safety Report 8560836-2 (Version None)
Quarter: 2012Q3

REPORT INFORMATION
  Report Type: 
  Country: None (occurrence: None)
  Receive Date: 20120802
  Receipt Date: 20120726
  Transmission Date: 20120928
  Serious: Yes (Death, Hospitalization)
  Sender: FDA-Public Use
  Company Number: DE-BAYER-2012-075245

PATIENT
  Age: 73 Year
  Sex: Male
  Weight: 85 kg

DRUGS (4)
  1. SIMVASTATIN [Concomitant]
     Dosage: 40 MG, UNK
     Dates: start: 20120201
  2. XARELTO [Interacting]
     Indication: ATRIAL FLUTTER
     Dosage: 20MG
     Dates: start: 20120201
  3. ASPIRIN [Suspect]
     Dosage: 100 MG, UNK
     Dates: start: 20120201
  4. XARELTO [Interacting]
     Indication: CEREBROVASCULAR ACCIDENT PROPHYLAXIS

REACTIONS (1)
  - HAEMORRHAGE INTRACRANIAL [None]
